FAERS Safety Report 14209709 (Version 2)
Quarter: 2017Q4

REPORT INFORMATION
  Report Type: Spontaneous
  Country: US (occurrence: US)
  Receive Date: 20171121
  Receipt Date: 20171213
  Transmission Date: 20180321
  Serious: No
  Sender: FDA-Public Use
  Company Number: US-VERTEX PHARMACEUTICALS-2017-006384

PATIENT
  Age: 33 Year
  Sex: Male

DRUGS (17)
  1. ANTABUSE [Concomitant]
     Active Substance: DISULFIRAM
     Dosage: 250 MG, QD
     Route: 048
  2. SINGULAIR [Concomitant]
     Active Substance: MONTELUKAST SODIUM
     Dosage: 1 TAB, EVERY EVENING
     Route: 048
  3. XOLAIR [Concomitant]
     Active Substance: OMALIZUMAB
     Dosage: 1.2 MILLILITER, EVERY 28 DAYS
     Route: 058
  4. VITAMIN B1 [Concomitant]
     Active Substance: THIAMINE HYDROCHLORIDE
     Dosage: 100 MG, QD
     Route: 048
  5. ORKAMBI [Suspect]
     Active Substance: IVACAFTOR\LUMACAFTOR
     Indication: CYSTIC FIBROSIS
     Dosage: 2 TABS, BID
     Route: 048
     Dates: start: 20171005
  6. ATROVENT [Concomitant]
     Active Substance: IPRATROPIUM BROMIDE
     Dosage: .5 MG, TID
     Route: 055
  7. AQUADEKS                           /07679501/ [Concomitant]
     Active Substance: MINERALS\VITAMINS
     Dosage: 1 CAP, BID, WITH FOOD
     Route: 048
  8. PRILOSEC [Concomitant]
     Active Substance: OMEPRAZOLE MAGNESIUM
     Dosage: 1 CAPSULE, QD
     Route: 048
  9. PROVENTIL HFA [Concomitant]
     Active Substance: ALBUTEROL SULFATE
     Dosage: 2 PUFFS BY INHALATION, EVERY 4 HOURS AS NEEDED
     Route: 055
  10. PROVENTIL [Concomitant]
     Active Substance: ALBUTEROL
     Indication: WHEEZING
     Dosage: 2.5 MG BY NEBULISATIION EVERY 4 HRS AS NEEDED
     Route: 055
  11. PULMOZYME [Concomitant]
     Active Substance: DORNASE ALFA
     Dosage: 2.5 MILLILITER, BID
     Route: 055
  12. CREON [Concomitant]
     Active Substance: PANCRELIPASE AMYLASE\PANCRELIPASE LIPASE\PANCRELIPASE PROTEASE
     Dosage: 4 CAPS WITH MEALS AND 2 CAPS WITH SNACKS
     Route: 048
  13. ZYRTEC [Concomitant]
     Active Substance: CETIRIZINE HYDROCHLORIDE
     Dosage: 10 MG, QD
     Route: 048
  14. CARAFATE [Concomitant]
     Active Substance: SUCRALFATE
     Dosage: 1 TAB, QID
     Route: 048
  15. OMNICEF                            /00497602/ [Concomitant]
     Active Substance: CEFOTAXIME SODIUM
     Dosage: 300 MG, BID
     Route: 048
  16. FOLVITE                            /00024201/ [Concomitant]
     Dosage: 1 MG, QD
     Route: 048
  17. LIBRIUM [Concomitant]
     Active Substance: CHLORDIAZEPOXIDE HYDROCHLORIDE
     Dosage: 10 MG, TID
     Route: 048

REACTIONS (3)
  - Chest discomfort [Not Recovered/Not Resolved]
  - Dyspnoea [Not Recovered/Not Resolved]
  - Paranasal sinus hypersecretion [Not Recovered/Not Resolved]

NARRATIVE: CASE EVENT DATE: 201710
